FAERS Safety Report 9881330 (Version 1)
Quarter: 2014Q1

REPORT INFORMATION
  Report Type: Spontaneous
  Country: FR (occurrence: FR)
  Receive Date: 20140207
  Receipt Date: 20140207
  Transmission Date: 20141002
  Serious: Yes (Hospitalization, Other)
  Sender: FDA-Public Use
  Company Number: FR-PFIZER INC-2014029016

PATIENT
  Age: 54 Year
  Sex: Female

DRUGS (9)
  1. SALAZOPYRINE [Suspect]
     Dosage: 2 DF, 2X/DAY
     Dates: start: 201303, end: 201312
  2. LIPANTHYL [Suspect]
     Indication: HYPERCHOLESTEROLAEMIA
     Dosage: 160 MG, 1X/DAY
     Route: 048
     Dates: start: 2010, end: 20131223
  3. ARAVA [Suspect]
     Indication: POLYARTHRITIS
     Dosage: 1 DF, 1X/DAY
     Dates: start: 201212, end: 201312
  4. LAMALINE [Suspect]
     Dosage: UNK
     Dates: end: 20131223
  5. INEXIUM /01479302/ [Suspect]
     Dosage: 20 MG, 1X/DAY
     Dates: end: 20131223
  6. ATARAX [Concomitant]
  7. SEROPLEX [Concomitant]
     Dosage: 10 MG, UNK
  8. TEMESTA [Concomitant]
     Dosage: 1 MG, UNK
  9. CORTANCYL [Concomitant]

REACTIONS (3)
  - Hepatitis [Recovered/Resolved]
  - Cholestasis [Recovering/Resolving]
  - Hepatocellular injury [Unknown]
